FAERS Safety Report 16058668 (Version 1)
Quarter: 2019Q1

REPORT INFORMATION
  Report Type: Spontaneous
  Country: US (occurrence: US)
  Receive Date: 20190311
  Receipt Date: 20190311
  Transmission Date: 20190418
  Serious: Yes (Other)
  Sender: FDA-Public Use
  Company Number: US-ASTRAZENECA-2018SF14587

PATIENT
  Sex: Male
  Weight: 85.7 kg

DRUGS (15)
  1. CIALIS [Concomitant]
     Active Substance: TADALAFIL
  2. ATORVASTATIN [Concomitant]
     Active Substance: ATORVASTATIN
  3. LASIX [Concomitant]
     Active Substance: FUROSEMIDE
  4. FLONASE [Concomitant]
     Active Substance: FLUTICASONE PROPIONATE
  5. PERMETHRIN. [Concomitant]
     Active Substance: PERMETHRIN
  6. SEPTRA [Concomitant]
     Active Substance: SULFAMETHOXAZOLE\TRIMETHOPRIM
  7. CLONIDINE. [Concomitant]
     Active Substance: CLONIDINE
  8. LANTUS [Concomitant]
     Active Substance: INSULIN GLARGINE
  9. PRILOSEC [Suspect]
     Active Substance: OMEPRAZOLE MAGNESIUM
     Route: 048
     Dates: start: 20120101, end: 20160101
  10. GABAPENTIN. [Concomitant]
     Active Substance: GABAPENTIN
  11. LISINOPRIL. [Concomitant]
     Active Substance: LISINOPRIL
  12. NOVOLOG [Concomitant]
     Active Substance: INSULIN ASPART
  13. STENDRA [Concomitant]
     Active Substance: AVANAFIL
  14. ASPIRIN. [Concomitant]
     Active Substance: ASPIRIN
  15. SPIRONOLACTONE. [Concomitant]
     Active Substance: SPIRONOLACTONE

REACTIONS (4)
  - Chronic kidney disease [Unknown]
  - Acute kidney injury [Unknown]
  - Renal injury [Unknown]
  - Nephritis [Unknown]
